FAERS Safety Report 4345972-9 (Version None)
Quarter: 2004Q1

REPORT INFORMATION
  Report Type: 
  Country: None (occurrence: None)
  Receive Date: 20040325
  Receipt Date: 20040212
  Transmission Date: 20041129
  Serious: No
  Sender: FDA-Public Use
  Company Number: USA030538126

PATIENT
  Age: 76 Year
  Sex: Male
  Weight: 86 kg

DRUGS (3)
  1. FORTEO [Suspect]
     Indication: OSTEOPOROSIS
     Dates: start: 20030515
  2. FOSAMAX [Concomitant]
  3. CALCITRIOL [Concomitant]

REACTIONS (5)
  - BENIGN SALIVARY GLAND NEOPLASM [None]
  - CARPAL TUNNEL SYNDROME [None]
  - DIZZINESS [None]
  - HYPOAESTHESIA [None]
  - MUSCLE CRAMP [None]
